FAERS Safety Report 9266883 (Version 1)
Quarter: 2013Q2

REPORT INFORMATION
  Report Type: Report from Study
  Country: JP (occurrence: JP)
  Receive Date: 20130502
  Receipt Date: 20130502
  Transmission Date: 20140414
  Serious: Yes (Other)
  Sender: FDA-Public Use
  Company Number: JP-SANOFI-AVENTIS-2013SA044816

PATIENT
  Age: 57 Year
  Sex: Female

DRUGS (7)
  1. CISPLATIN [Suspect]
     Indication: METASTASES TO CENTRAL NERVOUS SYSTEM
     Dosage: GIVEN BEFORE WHOLE-BRAIN RADIATION THERAPY
     Route: 065
  2. CARBOPLATIN [Suspect]
     Indication: METASTASES TO CENTRAL NERVOUS SYSTEM
     Route: 065
  3. DOCETAXEL [Suspect]
     Indication: METASTASES TO CENTRAL NERVOUS SYSTEM
     Route: 065
  4. PACLITAXEL [Suspect]
     Indication: METASTASES TO CENTRAL NERVOUS SYSTEM
     Route: 065
  5. THERAPEUTIC RADIOPHARMACEUTICALS [Suspect]
     Indication: METASTASES TO CENTRAL NERVOUS SYSTEM
     Dosage: 30 GY IN 11 FRACTIONS
     Route: 065
  6. GEFITINIB [Suspect]
     Indication: METASTASES TO CENTRAL NERVOUS SYSTEM
     Route: 065
  7. TS-1 [Suspect]
     Indication: METASTASES TO CENTRAL NERVOUS SYSTEM
     Route: 065

REACTIONS (6)
  - Leukoencephalopathy [Unknown]
  - Dementia [Unknown]
  - Gait disturbance [Unknown]
  - Urinary incontinence [Unknown]
  - Amnesia [Unknown]
  - Speech disorder [Unknown]
